FAERS Safety Report 10803830 (Version 3)
Quarter: 2015Q4

REPORT INFORMATION
  Report Type: Report from Study
  Country: US (occurrence: US)
  Receive Date: 20150217
  Receipt Date: 20151105
  Transmission Date: 20160304
  Serious: Yes (Hospitalization)
  Sender: FDA-Public Use
  Company Number: US-ACTELION-A-NJ2015-112804

PATIENT
  Age: 8 Year
  Sex: Male

DRUGS (16)
  1. ATROVENT [Concomitant]
     Active Substance: IPRATROPIUM BROMIDE
  2. SYMBICORT [Concomitant]
     Active Substance: BUDESONIDE\FORMOTEROL FUMARATE DIHYDRATE
     Dosage: UNK, INHALOR/BID
  3. ADCIRCA [Concomitant]
     Active Substance: TADALAFIL
     Dosage: 40 MG, QPM
  4. ALDACTAZIDE [Concomitant]
     Active Substance: HYDROCHLOROTHIAZIDE\SPIRONOLACTONE
  5. VERAMYST [Concomitant]
     Active Substance: FLUTICASONE FUROATE
  6. TRACLEER [Suspect]
     Active Substance: BOSENTAN
     Indication: PULMONARY ARTERIAL HYPERTENSION
     Dosage: 62.5 MG, BID
     Route: 048
  7. ALBUTEROL. [Concomitant]
     Active Substance: ALBUTEROL
     Dosage: 5 MG/ML, UNK
     Route: 055
  8. TRILEPTAL [Concomitant]
     Active Substance: OXCARBAZEPINE
     Dosage: 300 MG, UNK
  9. PRILOSEC [Concomitant]
     Active Substance: OMEPRAZOLE MAGNESIUM
     Dosage: 20 MG, QD
  10. IRON [Concomitant]
     Active Substance: IRON
  11. PROVENTIL [Concomitant]
     Active Substance: ALBUTEROL
  12. OXYGEN. [Concomitant]
     Active Substance: OXYGEN
  13. TYVASO [Concomitant]
     Active Substance: TREPROSTINIL
  14. ZYRTEC [Concomitant]
     Active Substance: CETIRIZINE HYDROCHLORIDE
  15. SILVADENE [Concomitant]
     Active Substance: SILVER SULFADIAZINE
  16. DIASTAT [Concomitant]
     Active Substance: DIAZEPAM
     Dosage: 10 MG, PRN
     Route: 054

REACTIONS (8)
  - Cough [Recovered/Resolved]
  - Pyrexia [Unknown]
  - Secretion discharge [Unknown]
  - Pulmonary arterial pressure increased [Unknown]
  - Respiratory syncytial virus infection [Recovered/Resolved]
  - Viral infection [Unknown]
  - Tracheobronchitis [Recovered/Resolved]
  - Dyspnoea [Recovered/Resolved]

NARRATIVE: CASE EVENT DATE: 20150124
